FAERS Safety Report 14537026 (Version 3)
Quarter: 2019Q4

REPORT INFORMATION
  Report Type: Spontaneous
  Country: CA (occurrence: CA)
  Receive Date: 20180215
  Receipt Date: 20191107
  Transmission Date: 20200122
  Serious: Yes (Other)
  Sender: FDA-Public Use
  Company Number: CA-MYLANLABS-12P-028-0943522-00

PATIENT
  Age: 10 Year
  Sex: Female
  Weight: 11.4 kg

DRUGS (8)
  1. ERGOCALCIFEROL. [Concomitant]
     Active Substance: ERGOCALCIFEROL
     Indication: PRODUCT USED FOR UNKNOWN INDICATION
     Dosage: UNK
  2. CALCIUM CARBONATE. [Concomitant]
     Active Substance: CALCIUM CARBONATE
     Indication: PRODUCT USED FOR UNKNOWN INDICATION
     Dosage: 125MILLIGRAM
  3. PHOSPHORUS [Concomitant]
     Active Substance: PHOSPHORUS
     Indication: PRODUCT USED FOR UNKNOWN INDICATION
     Dosage: UNK
  4. TOPIRAMATE. [Suspect]
     Active Substance: TOPIRAMATE
     Indication: SEIZURE
     Dosage: UNK UNK, TID
  5. LANSOPRAZOLE. [Concomitant]
     Active Substance: LANSOPRAZOLE
     Indication: PRODUCT USED FOR UNKNOWN INDICATION
     Dosage: 30MILLIGRAM
  6. VALPROIC ACID. [Suspect]
     Active Substance: VALPROIC ACID
     Indication: SEIZURE
     Dosage: UNK UNK, TID
  7. CARNITINE [Concomitant]
     Active Substance: CARNITINE
     Indication: PRODUCT USED FOR UNKNOWN INDICATION
     Dosage: 100MILLIGRAMBID
  8. POTASSIUM CITRATE. [Concomitant]
     Active Substance: POTASSIUM CITRATE
     Indication: PRODUCT USED FOR UNKNOWN INDICATION
     Dosage: UNK

REACTIONS (9)
  - Renal tubular acidosis [Recovered/Resolved]
  - Nephrocalcinosis [Recovered/Resolved]
  - Metabolic acidosis [Recovered/Resolved]
  - Fanconi syndrome acquired [Recovered/Resolved]
  - Blood alkaline phosphatase increased [Recovered/Resolved]
  - Urine calcium/creatinine ratio increased [Recovered/Resolved]
  - Glycosuria [Recovered/Resolved]
  - Hypophosphataemic osteomalacia [Recovered/Resolved]
  - Proteinuria [Recovered/Resolved]
